FAERS Safety Report 6159887-7 (Version None)
Quarter: 2009Q2

REPORT INFORMATION
  Report Type: 
  Country: None (occurrence: None)
  Receive Date: 20090420
  Receipt Date: 20090415
  Transmission Date: 20091009
  Serious: Yes (Death, Other)
  Sender: FDA-Public Use
  Company Number: PHHY2009JP09946

PATIENT
  Sex: Male
  Weight: 65 kg

DRUGS (12)
  1. NEORAL [Suspect]
     Indication: WEGENER'S GRANULOMATOSIS
     Dosage: 100 MG/DAY
     Route: 048
     Dates: start: 20040914
  2. NEORAL [Suspect]
     Dosage: 75 MG/DAY
     Route: 048
     Dates: start: 20050607
  3. NEORAL [Suspect]
     Dosage: 50 MG/DAY
     Route: 048
     Dates: start: 20060912
  4. NEORAL [Suspect]
     Dosage: 25 MG/DAY
     Route: 048
     Dates: start: 20070209, end: 20080701
  5. PREDONINE [Concomitant]
     Indication: WEGENER'S GRANULOMATOSIS
     Dosage: 7.5 MG
     Route: 048
     Dates: start: 19950101
  6. PREDONINE [Concomitant]
     Dosage: UNK
     Route: 048
     Dates: end: 20080701
  7. IMURAN [Concomitant]
     Indication: WEGENER'S GRANULOMATOSIS
     Dosage: UNK
     Dates: start: 20040601, end: 20040101
  8. BAKTAR [Concomitant]
     Indication: WEGENER'S GRANULOMATOSIS
     Dosage: 4 DF
     Route: 048
     Dates: start: 19980519
  9. BAKTAR [Concomitant]
     Dosage: 2 DF
     Route: 048
     Dates: end: 20080701
  10. ITRIZOLE [Concomitant]
     Indication: BRONCHOPULMONARY ASPERGILLOSIS
     Dosage: 4 DF
     Route: 048
     Dates: start: 20031002, end: 20070118
  11. VFEND [Concomitant]
     Indication: BRONCHOPULMONARY ASPERGILLOSIS
     Dosage: 6 DF
     Route: 048
     Dates: start: 20070118
  12. VFEND [Concomitant]
     Dosage: 8 DF
     Route: 048

REACTIONS (12)
  - ANAEMIA [None]
  - ASPARTATE AMINOTRANSFERASE INCREASED [None]
  - BLOOD ALKALINE PHOSPHATASE INCREASED [None]
  - BLOOD CREATININE INCREASED [None]
  - BRONCHOPULMONARY ASPERGILLOSIS [None]
  - CONCOMITANT DISEASE AGGRAVATED [None]
  - ENDOCARDITIS BACTERIAL [None]
  - GAMMA-GLUTAMYLTRANSFERASE INCREASED [None]
  - LIVER DISORDER [None]
  - LUNG CYST [None]
  - LUNG DISORDER [None]
  - PROTEIN URINE PRESENT [None]
